FAERS Safety Report 23802875 (Version 2)
Quarter: 2024Q2

REPORT INFORMATION
  Report Type: Spontaneous
  Country: US (occurrence: US)
  Receive Date: 20240501
  Receipt Date: 20240508
  Transmission Date: 20240715
  Serious: Yes (Hospitalization, Other)
  Sender: FDA-Public Use
  Company Number: US-Blueprint Medicines Corporation-3305

PATIENT
  Age: 93 Year
  Sex: Male

DRUGS (1)
  1. AYVAKIT [Suspect]
     Active Substance: AVAPRITINIB
     Indication: Advanced systemic mastocytosis
     Route: 048
     Dates: start: 20240220

REACTIONS (9)
  - Pneumonia [Unknown]
  - Fatigue [Recovered/Resolved]
  - Decreased appetite [Recovered/Resolved]
  - Dehydration [Recovered/Resolved]
  - Thrombocytopenia [Unknown]
  - Hyperbilirubinaemia [Unknown]
  - Oedema [Unknown]
  - Mental status changes [Unknown]
  - Drug interaction [Unknown]

NARRATIVE: CASE EVENT DATE: 20240405
